FAERS Safety Report 23076151 (Version 3)
Quarter: 2023Q4

REPORT INFORMATION
  Report Type: Report from Study
  Country: IE (occurrence: IE)
  Receive Date: 20231017
  Receipt Date: 20231026
  Transmission Date: 20240110
  Serious: Yes (Hospitalization)
  Sender: FDA-Public Use
  Company Number: IE-Eisai Medical Research-EC-2023-147965

PATIENT
  Age: 56 Year
  Sex: Male
  Weight: 61.0 kg

DRUGS (12)
  1. LENVATINIB [Suspect]
     Active Substance: LENVATINIB
     Indication: Clear cell renal cell carcinoma
     Dosage: STARTING DOSE AT 20 MG (FLUCTUATED DOSAGE)
     Route: 048
     Dates: start: 20230406, end: 20230801
  2. QUAVONLIMAB [Suspect]
     Active Substance: QUAVONLIMAB
     Indication: Clear cell renal cell carcinoma
     Dosage: MK-1308 25MG + PEMBROLIZUMAB 400MG
     Route: 041
     Dates: start: 20230406, end: 20230712
  3. PEMBROLIZUMAB [Suspect]
     Active Substance: PEMBROLIZUMAB
     Dosage: MK-1308 25MG + PEMBROLIZUMAB 400MG
     Route: 041
     Dates: start: 20230927, end: 20230927
  4. SOLPADEIN [Concomitant]
     Dates: start: 202211
  5. SILCOCK^S BASE CREAM [Concomitant]
     Dates: start: 20230530
  6. ELOCON [MOMETASONE FUROATE] [Concomitant]
     Dates: start: 20230530
  7. ELOCON [MOMETASONE FUROATE] [Concomitant]
  8. LEVOTHYROXINE [Concomitant]
     Active Substance: LEVOTHYROXINE
     Dates: start: 20230602
  9. ENSURE PLUS ADVANCE [Concomitant]
     Dates: start: 20230627, end: 20230829
  10. ZOLPIDEM [Concomitant]
     Active Substance: ZOLPIDEM TARTRATE
     Dates: start: 202301
  11. FOLIC ACID [Concomitant]
     Active Substance: FOLIC ACID
     Dates: start: 202211
  12. AMLODIPINE [Concomitant]
     Active Substance: AMLODIPINE BESYLATE
     Dates: start: 202211

REACTIONS (1)
  - Adrenal insufficiency [Not Recovered/Not Resolved]

NARRATIVE: CASE EVENT DATE: 20230821
